FAERS Safety Report 22208953 (Version 4)
Quarter: 2025Q1

REPORT INFORMATION
  Report Type: Spontaneous
  Country: US (occurrence: US)
  Receive Date: 20230413
  Receipt Date: 20250220
  Transmission Date: 20250408
  Serious: Yes (Other)
  Sender: PFIZER
  Company Number: US-PFIZER INC-202300152172

PATIENT
  Age: 80 Year
  Sex: Male

DRUGS (2)
  1. VYNDAMAX [Suspect]
     Active Substance: TAFAMIDIS
     Indication: Cardiac disorder
     Dosage: 61 MG, 1X/DAY EVERY MORNING
     Route: 048
  2. VYNDAMAX [Suspect]
     Active Substance: TAFAMIDIS
     Indication: Amyloidosis

REACTIONS (6)
  - Dementia [Unknown]
  - Craniocerebral injury [Unknown]
  - Accident [Unknown]
  - Head injury [Unknown]
  - Haemorrhage [Unknown]
  - Concussion [Unknown]
